FAERS Safety Report 13304905 (Version 1)
Quarter: 2017Q1

REPORT INFORMATION
  Report Type: Report from Study
  Country: PK (occurrence: PK)
  Receive Date: 20170308
  Receipt Date: 20170308
  Transmission Date: 20170428
  Serious: Yes (Death, Other)
  Sender: FDA-Public Use
  Company Number: PK-ROCHE-1901575

PATIENT

DRUGS (26)
  1. GEMCITABINE [Suspect]
     Active Substance: GEMCITABINE\GEMCITABINE HYDROCHLORIDE
     Indication: NEOPLASM MALIGNANT
     Route: 065
  2. ETOPOSIDE. [Suspect]
     Active Substance: ETOPOSIDE
     Indication: NEOPLASM MALIGNANT
     Route: 065
  3. PEMETREXED [Suspect]
     Active Substance: PEMETREXED
     Indication: NEOPLASM MALIGNANT
     Route: 065
  4. TRASTUZUMAB [Suspect]
     Active Substance: TRASTUZUMAB
     Indication: NEOPLASM MALIGNANT
     Route: 065
  5. CISPLATIN. [Suspect]
     Active Substance: CISPLATIN
     Indication: NEOPLASM MALIGNANT
     Route: 065
  6. OXALIPLATIN. [Suspect]
     Active Substance: OXALIPLATIN
     Indication: NEOPLASM MALIGNANT
     Route: 065
  7. PACLITAXEL. [Suspect]
     Active Substance: PACLITAXEL
     Indication: NEOPLASM MALIGNANT
     Route: 065
  8. 5-FU [Suspect]
     Active Substance: FLUOROURACIL
     Indication: NEOPLASM MALIGNANT
     Route: 065
  9. EPIRUBICIN [Suspect]
     Active Substance: EPIRUBICIN
     Indication: NEOPLASM MALIGNANT
     Route: 065
  10. DEXAMETHASONE. [Suspect]
     Active Substance: DEXAMETHASONE
     Indication: NEOPLASM MALIGNANT
     Route: 065
  11. CYTARABINE HYDROCHLORIDE [Suspect]
     Active Substance: CYTARABINE HYDROCHLORIDE
     Indication: NEOPLASM MALIGNANT
     Route: 065
  12. IRINOTECAN [Suspect]
     Active Substance: IRINOTECAN
     Indication: NEOPLASM MALIGNANT
     Route: 065
  13. CYCLOPHOSPHAMIDE. [Suspect]
     Active Substance: CYCLOPHOSPHAMIDE
     Indication: NEOPLASM MALIGNANT
     Route: 065
  14. LEUCOVORIN. [Suspect]
     Active Substance: LEUCOVORIN
     Indication: NEOPLASM MALIGNANT
     Route: 065
  15. DOXORUBICIN [Suspect]
     Active Substance: DOXORUBICIN
     Indication: NEOPLASM MALIGNANT
     Route: 065
  16. IFOSFAMIDE. [Suspect]
     Active Substance: IFOSFAMIDE
     Indication: NEOPLASM MALIGNANT
     Route: 065
  17. VINCRISTINE [Suspect]
     Active Substance: VINCRISTINE
     Indication: NEOPLASM MALIGNANT
     Route: 065
  18. CETUXIMAB. [Suspect]
     Active Substance: CETUXIMAB
     Indication: NEOPLASM MALIGNANT
     Route: 065
  19. NAVELBINE [Suspect]
     Active Substance: VINORELBINE TARTRATE
     Indication: NEOPLASM MALIGNANT
     Route: 065
  20. PREDNISONE. [Suspect]
     Active Substance: PREDNISONE
     Indication: NEOPLASM MALIGNANT
     Route: 065
  21. CARBOPLATIN. [Suspect]
     Active Substance: CARBOPLATIN
     Indication: NEOPLASM MALIGNANT
     Route: 065
  22. VINBLASTINE [Suspect]
     Active Substance: VINBLASTINE
     Indication: NEOPLASM MALIGNANT
     Route: 065
  23. CAPECITABINE. [Suspect]
     Active Substance: CAPECITABINE
     Indication: NEOPLASM MALIGNANT
     Route: 065
  24. DACARBAZINE. [Suspect]
     Active Substance: DACARBAZINE
     Indication: NEOPLASM MALIGNANT
     Route: 065
  25. DOCETAXEL. [Suspect]
     Active Substance: DOCETAXEL
     Indication: NEOPLASM MALIGNANT
     Route: 065
  26. BLEOMYCIN [Suspect]
     Active Substance: BLEOMYCIN SULFATE
     Indication: NEOPLASM MALIGNANT
     Route: 065

REACTIONS (3)
  - Embolism venous [Fatal]
  - Deep vein thrombosis [Fatal]
  - Pulmonary embolism [Fatal]
